FAERS Safety Report 7623546-1 (Version None)
Quarter: 2011Q3

REPORT INFORMATION
  Report Type: 
  Country: None (occurrence: None)
  Receive Date: 20110720
  Receipt Date: 20110707
  Transmission Date: 20111222
  Serious: Yes (Hospitalization)
  Sender: FDA-Public Use
  Company Number: DE-ELI_LILLY_AND_COMPANY-DE201105001941

PATIENT
  Sex: Female
  Weight: 75.8 kg

DRUGS (4)
  1. METHYLPHENIDATE [Concomitant]
     Indication: ATTENTION DEFICIT/HYPERACTIVITY DISORDER
     Dosage: UNK
     Dates: end: 20100801
  2. STRATTERA [Suspect]
     Dosage: 40 MG, QD
     Route: 048
     Dates: start: 20101001, end: 20101101
  3. SINGULAIR [Concomitant]
     Indication: ASTHMA
     Dosage: 10 MG, QD
     Route: 048
  4. STRATTERA [Suspect]
     Indication: ATTENTION DEFICIT/HYPERACTIVITY DISORDER
     Dosage: 65MG, QD
     Route: 048
     Dates: start: 20100801, end: 20101001

REACTIONS (4)
  - ABDOMINAL PAIN UPPER [None]
  - BLOOD BILIRUBIN INCREASED [None]
  - NAUSEA [None]
  - EOSINOPHIL COUNT INCREASED [None]
